FAERS Safety Report 24151092 (Version 8)
Quarter: 2024Q4

REPORT INFORMATION
  Report Type: Spontaneous
  Country: BE (occurrence: BE)
  Receive Date: 20240730
  Receipt Date: 20241113
  Transmission Date: 20250114
  Serious: Yes (Death, Hospitalization, Other)
  Sender: RANBAXY
  Company Number: BE-SUN PHARMACEUTICAL INDUSTRIES LTD-2024RR-459961

PATIENT
  Age: 85 Year
  Sex: Male

DRUGS (20)
  1. TAMSULOSIN [Suspect]
     Active Substance: TAMSULOSIN
     Indication: Benign prostatic hyperplasia
     Dosage: 0.4 MILLIGRAM, QD
     Route: 048
  2. ACORAMIDIS [Suspect]
     Active Substance: ACORAMIDIS
     Indication: Product used for unknown indication
     Dosage: UNK
     Route: 065
  3. BUMETANIDE [Suspect]
     Active Substance: BUMETANIDE
     Indication: Cardiac failure
     Dosage: 1 MILLIGRAM, QD
     Route: 048
     Dates: start: 20230927
  4. BUMETANIDE [Suspect]
     Active Substance: BUMETANIDE
     Dosage: UNK
     Route: 065
     Dates: start: 20240621
  5. BUMETANIDE [Suspect]
     Active Substance: BUMETANIDE
     Dosage: 2 MILLIGRAM, QD
     Route: 065
     Dates: start: 20240701
  6. DAPAGLIFLOZIN [Suspect]
     Active Substance: DAPAGLIFLOZIN
     Indication: Cardiac failure
     Dosage: 10 MILLIGRAM, QD
     Route: 048
     Dates: start: 20231006, end: 20240618
  7. EDOXABAN TOSYLATE [Suspect]
     Active Substance: EDOXABAN TOSYLATE
     Indication: Thrombosis
     Dosage: 30 MILLIGRAM, QD
     Route: 048
     Dates: start: 20240621
  8. BISOPROLOL [Concomitant]
     Active Substance: BISOPROLOL\BISOPROLOL FUMARATE
     Indication: Hypertension
     Dosage: 2.5 MILLIGRAM, QD
     Route: 048
     Dates: start: 20230426
  9. CORDARONE [Concomitant]
     Active Substance: AMIODARONE HYDROCHLORIDE
     Indication: Atrial fibrillation
     Dosage: 200 MILLIGRAM, QD
     Route: 048
     Dates: start: 20230309
  10. Pantomed [Concomitant]
     Indication: Gastric ulcer
     Dosage: 40 MILLIGRAM, QD
     Route: 048
  11. CONMED [Concomitant]
     Indication: Hypercholesterolaemia
     Dosage: 20 MILLIGRAM, QD
     Route: 048
  12. ULTRA K [Concomitant]
     Indication: Product used for unknown indication
     Dosage: 2.5 ML TWO TIMES A DAY
     Route: 065
     Dates: start: 20240629
  13. SCOPOLAMINE [Concomitant]
     Active Substance: SCOPOLAMINE
     Indication: Product used for unknown indication
     Dosage: 7.5 MILLILITER
     Route: 058
     Dates: start: 20240703
  14. MORPHINE [Concomitant]
     Active Substance: MORPHINE
     Indication: Product used for unknown indication
     Dosage: 5 MILLIGRAM
     Route: 058
     Dates: start: 20230701, end: 20230703
  15. ALDACTONE [Concomitant]
     Active Substance: SPIRONOLACTONE
     Indication: Cardiac failure
     Dosage: 25 MILLIGRAM, QID
     Route: 042
  16. ALDACTONE [Concomitant]
     Active Substance: SPIRONOLACTONE
     Dosage: 200 MILLIGRAM, QD
     Route: 042
     Dates: start: 20240630, end: 20240630
  17. PIPERACILLIN SODIUM\TAZOBACTAM SODIUM [Concomitant]
     Active Substance: PIPERACILLIN SODIUM\TAZOBACTAM SODIUM
     Indication: Pneumonia
     Dosage: 4 GRAM, QID
     Route: 042
     Dates: start: 20240625, end: 20240703
  18. ACETAMINOPHEN [Concomitant]
     Active Substance: ACETAMINOPHEN
     Indication: Product used for unknown indication
     Dosage: 500 MILLIGRAM
     Route: 048
     Dates: start: 20240624
  19. ACETAMINOPHEN [Concomitant]
     Active Substance: ACETAMINOPHEN
     Dosage: 1 GRAM
     Route: 042
     Dates: start: 20240630
  20. SIMVASTATIN [Concomitant]
     Active Substance: SIMVASTATIN
     Indication: Product used for unknown indication
     Dosage: 20 MILLIGRAM
     Route: 065

REACTIONS (6)
  - Pneumonia [Fatal]
  - Cardiac failure acute [Fatal]
  - Cardiac failure congestive [Fatal]
  - Acute kidney injury [Fatal]
  - Liver function test abnormal [Fatal]
  - Haematuria [Fatal]

NARRATIVE: CASE EVENT DATE: 20240624
